FAERS Safety Report 19834272 (Version 2)
Quarter: 2022Q2

REPORT INFORMATION
  Report Type: Report from Study
  Country: US (occurrence: US)
  Receive Date: 20210915
  Receipt Date: 20220513
  Transmission Date: 20220721
  Serious: No
  Sender: FDA-Public Use
  Company Number: US-TEVA-2021-US-1952274

PATIENT
  Age: 56 Year
  Sex: Male

DRUGS (1)
  1. CLOZAPINE [Suspect]
     Active Substance: CLOZAPINE
     Route: 065

REACTIONS (2)
  - Hypersensitivity [Unknown]
  - Allergy to chemicals [Unknown]
